FAERS Safety Report 13109612 (Version 1)
Quarter: 2017Q1

REPORT INFORMATION
  Report Type: Spontaneous
  Country: SA (occurrence: SA)
  Receive Date: 20170112
  Receipt Date: 20170112
  Transmission Date: 20170428
  Serious: Yes (Hospitalization, Other)
  Sender: FDA-Public Use
  Company Number: SA-SA-2016SA232109

PATIENT
  Age: 46 Year
  Sex: Male

DRUGS (12)
  1. COLECALCIFEROL [Suspect]
     Active Substance: CHOLECALCIFEROL
     Indication: HUNGRY BONE SYNDROME
     Route: 042
  2. CALCIUM SALT NOT SPECIFIED [Suspect]
     Active Substance: CALCIUM
     Indication: HUNGRY BONE SYNDROME
     Dosage: INFUSION
     Route: 065
  3. CINACALCET HYDROCHLORIDE [Suspect]
     Active Substance: CINACALCET HYDROCHLORIDE
     Indication: HYPERPARATHYROIDISM
     Route: 065
     Dates: start: 2006
  4. COLECALCIFEROL [Suspect]
     Active Substance: CHOLECALCIFEROL
     Indication: HUNGRY BONE SYNDROME
     Route: 065
  5. ALFACALCIDOL [Suspect]
     Active Substance: ALFACALCIDOL
     Indication: HUNGRY BONE SYNDROME
     Route: 065
  6. CALCIUM CARBONATE. [Suspect]
     Active Substance: CALCIUM CARBONATE
     Indication: HUNGRY BONE SYNDROME
     Dosage: ADJUSTED?FORM: INFUSION
     Route: 065
  7. COLECALCIFEROL [Suspect]
     Active Substance: CHOLECALCIFEROL
     Indication: HYPERPARATHYROIDISM
     Route: 042
  8. CALCIUM CARBONATE. [Suspect]
     Active Substance: CALCIUM CARBONATE
     Indication: HYPERPARATHYROIDISM
     Dosage: ADJUSTED?FORM: INFUSION
     Route: 065
  9. COLECALCIFEROL [Suspect]
     Active Substance: CHOLECALCIFEROL
     Indication: HYPERPARATHYROIDISM
     Route: 065
  10. CALCIUM CARBONATE. [Suspect]
     Active Substance: CALCIUM CARBONATE
     Indication: HUNGRY BONE SYNDROME
     Dosage: 2MGX3MGX600MG
     Route: 048
  11. CALCIUM CARBONATE. [Suspect]
     Active Substance: CALCIUM CARBONATE
     Indication: HYPERPARATHYROIDISM
     Dosage: 2MGX3MGX600MG
     Route: 048
  12. SEVELAMER HYDROCHLORIDE [Suspect]
     Active Substance: SEVELAMER HYDROCHLORIDE
     Indication: HYPERPARATHYROIDISM
     Dosage: 800MG 2 X 3
     Route: 065

REACTIONS (7)
  - Skin lesion [Recovered/Resolved]
  - Calciphylaxis [Recovered/Resolved]
  - Skin discolouration [Recovered/Resolved]
  - Hyperparathyroidism [Unknown]
  - Drug ineffective [Unknown]
  - Penile pain [Recovered/Resolved]
  - Pathological fracture [Unknown]
